FAERS Safety Report 25503639 (Version 1)
Quarter: 2025Q3

REPORT INFORMATION
  Report Type: Spontaneous
  Country: US (occurrence: US)
  Receive Date: 20250702
  Receipt Date: 20250702
  Transmission Date: 20251020
  Serious: Yes (Other)
  Sender: BIOGEN
  Company Number: US-BIOGEN-2025BI01315145

PATIENT
  Sex: Female

DRUGS (7)
  1. ZURZUVAE [Suspect]
     Active Substance: ZURANOLONE
     Indication: Perinatal depression
     Route: 050
     Dates: start: 20250607
  2. CLONAZEPAM [Suspect]
     Active Substance: CLONAZEPAM
     Indication: Panic disorder
     Route: 050
     Dates: start: 202506
  3. CLONAZEPAM [Suspect]
     Active Substance: CLONAZEPAM
     Dosage: ONE IN THE MORNING, ONE MID-AFTERNOON
     Route: 050
     Dates: start: 202506
  4. CLONAZEPAM [Suspect]
     Active Substance: CLONAZEPAM
     Route: 050
  5. PRISTIQ EXTENDED-RELEASE [Concomitant]
     Active Substance: DESVENLAFAXINE SUCCINATE
     Indication: Product used for unknown indication
     Route: 050
  6. SEROQUEL [Concomitant]
     Active Substance: QUETIAPINE FUMARATE
     Indication: Product used for unknown indication
     Route: 050
  7. GABAPENTIN [Concomitant]
     Active Substance: GABAPENTIN
     Indication: Product used for unknown indication
     Dosage: AS NEEDED
     Route: 050

REACTIONS (3)
  - Suicidal ideation [Unknown]
  - Feeling abnormal [Unknown]
  - Memory impairment [Unknown]

NARRATIVE: CASE EVENT DATE: 20250101
